FAERS Safety Report 10884307 (Version 1)
Quarter: 2015Q1

REPORT INFORMATION
  Report Type: Spontaneous
  Country: JP (occurrence: JP)
  Receive Date: 20150304
  Receipt Date: 20150304
  Transmission Date: 20150721
  Serious: Yes (Death)
  Sender: FDA-Public Use
  Company Number: JP-CIPLA LTD.-2015JP01524

PATIENT

DRUGS (6)
  1. IRINOTECAN [Suspect]
     Active Substance: IRINOTECAN
     Indication: SMALL CELL LUNG CANCER
  2. ETOPOSIDE. [Suspect]
     Active Substance: ETOPOSIDE
     Indication: SMALL CELL LUNG CANCER
  3. ETOPOSIDE. [Suspect]
     Active Substance: ETOPOSIDE
     Indication: INTERSTITIAL LUNG DISEASE
  4. CISPLATIN. [Suspect]
     Active Substance: CISPLATIN
     Indication: INTERSTITIAL LUNG DISEASE
  5. IRINOTECAN [Suspect]
     Active Substance: IRINOTECAN
     Indication: INTERSTITIAL LUNG DISEASE
  6. CISPLATIN. [Suspect]
     Active Substance: CISPLATIN
     Indication: SMALL CELL LUNG CANCER

REACTIONS (1)
  - Interstitial lung disease [Fatal]
